FAERS Safety Report 15722651 (Version 1)
Quarter: 2018Q4

REPORT INFORMATION
  Report Type: Spontaneous
  Country: US (occurrence: US)
  Receive Date: 20181214
  Receipt Date: 20181214
  Transmission Date: 20190205
  Serious: No
  Sender: FDA-Public Use
  Company Number: US-009507513-1811USA007832

PATIENT
  Age: 65 Year
  Sex: Female

DRUGS (2)
  1. REMERON SOLTAB [Suspect]
     Active Substance: MIRTAZAPINE
     Dosage: 45 MILLIGRAM, ONCE DAILY
     Route: 048
  2. SYNTHROID [Concomitant]
     Active Substance: LEVOTHYROXINE SODIUM
     Dosage: UNK

REACTIONS (5)
  - Oesophageal irritation [Recovering/Resolving]
  - Oesophageal pain [Recovering/Resolving]
  - Wrong technique in product usage process [Unknown]
  - Cough [Recovering/Resolving]
  - Dysphonia [Not Recovered/Not Resolved]
